FAERS Safety Report 5564343-0 (Version None)
Quarter: 2007Q4

REPORT INFORMATION
  Report Type: 
  Country: None (occurrence: None)
  Receive Date: 20071218
  Receipt Date: 20071206
  Transmission Date: 20080405
  Serious: Yes (Hospitalization)
  Sender: FDA-Public Use
  Company Number: PHHO2007US20283

PATIENT

DRUGS (1)
  1. RIVASTIGMINE [Suspect]
     Indication: DEMENTIA ALZHEIMER'S TYPE

REACTIONS (1)
  - AGGRESSION [None]
